FAERS Safety Report 8329573-3 (Version None)
Quarter: 2012Q2

REPORT INFORMATION
  Report Type: 
  Country: None (occurrence: None)
  Receive Date: 20120502
  Receipt Date: 20120425
  Transmission Date: 20120825
  Serious: Yes (Other)
  Sender: FDA-Public Use
  Company Number: FR-BRISTOL-MYERS SQUIBB COMPANY-14521462

PATIENT
  Age: 75 Year
  Sex: Female

DRUGS (5)
  1. ACTONEL [Concomitant]
  2. CIRKAN [Concomitant]
     Dates: end: 20061123
  3. COLCHICINE [Concomitant]
     Dates: end: 20070501
  4. HYDREA [Suspect]
  5. ALLOPURINOL [Concomitant]
     Dates: end: 20070101

REACTIONS (1)
  - PERICARDITIS [None]
